FAERS Safety Report 5316577-8 (Version None)
Quarter: 2007Q2

REPORT INFORMATION
  Report Type: 
  Country: None (occurrence: None)
  Receive Date: 20070504
  Receipt Date: 20070425
  Transmission Date: 20071010
  Serious: Yes (Hospitalization, Other)
  Sender: FDA-Public Use
  Company Number: DE-JNJFOC-20070402963

PATIENT
  Sex: Female

DRUGS (2)
  1. TOPAMAX [Suspect]
     Indication: DRUG USE FOR UNKNOWN INDICATION
     Route: 048
  2. DOXEPIN HCL [Suspect]
     Indication: DRUG USE FOR UNKNOWN INDICATION
     Route: 048

REACTIONS (8)
  - ASPIRATION [None]
  - GRAND MAL CONVULSION [None]
  - HYPOTHERMIA [None]
  - HYPOXIA [None]
  - MIOSIS [None]
  - SOPOR [None]
  - SUICIDE ATTEMPT [None]
  - TONGUE BITING [None]
